FAERS Safety Report 7884800-1 (Version None)
Quarter: 2011Q4

REPORT INFORMATION
  Report Type: 
  Country: None (occurrence: None)
  Receive Date: 20111102
  Receipt Date: 20111027
  Transmission Date: 20120403
  Serious: Yes (Life-Threatening, Hospitalization)
  Sender: FDA-Public Use
  Company Number: PHHO2011DE11626

PATIENT
  Sex: Female
  Weight: 62 kg

DRUGS (5)
  1. DOCETAXEL [Suspect]
     Dosage: 122.25
     Route: 042
     Dates: start: 20110609, end: 20110630
  2. BISOPROLOL [Concomitant]
     Indication: HYPERTENSION
     Dosage: 2.5 MG, QD
     Route: 048
     Dates: start: 19910101
  3. CAPECITABINE [Suspect]
     Dosage: 2600 MG, QD
     Route: 048
     Dates: start: 20110609, end: 20110701
  4. NO TREATMENT RECEIVED [Suspect]
     Indication: BREAST CANCER
  5. L-THYROX 50 [Concomitant]
     Indication: THYROIDECTOMY
     Dosage: 24 MG, QD
     Route: 048
     Dates: start: 20050101

REACTIONS (8)
  - RENAL FAILURE [None]
  - MULTI-ORGAN FAILURE [None]
  - ENTEROCOLITIS INFECTIOUS [None]
  - ATRIAL FIBRILLATION [None]
  - TACHYCARDIA PAROXYSMAL [None]
  - ENTEROBACTER INFECTION [None]
  - PANCREATIC ATROPHY [None]
  - NEUTROPENIA [None]
